FAERS Safety Report 6776793-5 (Version None)
Quarter: 2010Q2

REPORT INFORMATION
  Report Type: 
  Country: None (occurrence: None)
  Receive Date: 20100617
  Receipt Date: 20100617
  Transmission Date: 20101027
  Serious: Yes (Disabling)
  Sender: FDA-Public Use
  Company Number: None

PATIENT
  Age: 49 Year
  Sex: Male
  Weight: 72.8 kg

DRUGS (10)
  1. CRESTOR [Suspect]
  2. ANCEF [Concomitant]
  3. BOOSTRIX [Concomitant]
  4. MORPHINE [Concomitant]
  5. SOLU-MEDROL [Concomitant]
  6. ZEMURON INJ [Concomitant]
  7. QUELICIN INJ [Concomitant]
  8. DILAUDID [Concomitant]
  9. LORTAB [Concomitant]
  10. ZOFRAN [Concomitant]

REACTIONS (4)
  - ALANINE AMINOTRANSFERASE INCREASED [None]
  - ASPARTATE AMINOTRANSFERASE INCREASED [None]
  - BLOOD BILIRUBIN INCREASED [None]
  - ROAD TRAFFIC ACCIDENT [None]
